FAERS Safety Report 8267598-7 (Version None)
Quarter: 2012Q2

REPORT INFORMATION
  Report Type: 
  Country: None (occurrence: None)
  Receive Date: 20120409
  Receipt Date: 20120329
  Transmission Date: 20120825
  Serious: Yes (Hospitalization, Other)
  Sender: FDA-Public Use
  Company Number: US-ELI_LILLY_AND_COMPANY-US201204000351

PATIENT
  Age: 80 Year
  Sex: Female

DRUGS (12)
  1. FORTEO [Suspect]
     Indication: OSTEOPOROSIS
     Dosage: 20 UG, QD
     Dates: start: 20110301
  2. PROTONIX [Concomitant]
  3. GABAPENTIN [Concomitant]
     Dosage: 400 MG, TID
  4. CLONAZEPAM [Concomitant]
     Dosage: UNK, BID
  5. CYCLOBENZAPRINE [Concomitant]
     Dosage: UNK, TID
  6. REQUIP [Concomitant]
     Dosage: UNK, BID
  7. MULTI-VITAMIN [Concomitant]
  8. SYNTHROID [Concomitant]
  9. TRAMADOL HCL [Concomitant]
     Dosage: UNK, TID
  10. LIDOCAINE [Concomitant]
     Dosage: UNK, PRN
  11. CALCIUM CARBONATE [Concomitant]
  12. METOPROLOL                         /00376902/ [Concomitant]
     Dosage: UNK, BID

REACTIONS (3)
  - ARTHRITIS [None]
  - ARTHROPATHY [None]
  - BONE DISORDER [None]
